FAERS Safety Report 9663732 (Version 3)
Quarter: 2013Q4

REPORT INFORMATION
  Report Type: Spontaneous
  Country: JP (occurrence: JP)
  Receive Date: 20131101
  Receipt Date: 20131122
  Transmission Date: 20140711
  Serious: Yes (Death, Hospitalization)
  Sender: FDA-Public Use
  Company Number: PHHY2013JP122927

PATIENT
  Age: 74 Year
  Sex: Female

DRUGS (4)
  1. NEORAL [Suspect]
     Indication: INTERSTITIAL LUNG DISEASE
     Dosage: 125 MG, DAILY
     Route: 048
     Dates: end: 201210
  2. NEORAL [Suspect]
     Indication: DERMATOMYOSITIS
  3. NEORAL [Suspect]
     Indication: OFF LABEL USE
  4. MEFLOQUINE [Suspect]
     Route: 048

REACTIONS (6)
  - Progressive multifocal leukoencephalopathy [Fatal]
  - JC virus infection [Fatal]
  - Central nervous system lesion [Fatal]
  - Paralysis [Fatal]
  - Hemiparesis [Fatal]
  - Aphasia [Fatal]
